FAERS Safety Report 4760006-X (Version None)
Quarter: 2005Q3

REPORT INFORMATION
  Report Type: 
  Country: None (occurrence: None)
  Receive Date: 20050902
  Receipt Date: 20050825
  Transmission Date: 20060218
  Serious: Yes (Hospitalization)
  Sender: FDA-Public Use
  Company Number: US-AMGEN-US148004

PATIENT
  Age: 48 Year
  Sex: Male
  Weight: 106.7 kg

DRUGS (5)
  1. PROCRIT [Suspect]
     Indication: ANAEMIA OF MALIGNANT DISEASE
     Dates: start: 20050811
  2. BLEOMYCIN [Concomitant]
  3. ETOPOSIDE [Concomitant]
  4. CARBOPLATIN [Concomitant]
  5. BLOOD CELLS, PACKED HUMAN [Concomitant]
     Route: 042
     Dates: start: 20050824

REACTIONS (3)
  - FALL [None]
  - FEMUR FRACTURE [None]
  - HAEMOGLOBIN DECREASED [None]
